FAERS Safety Report 17338861 (Version 1)
Quarter: 2020Q1

REPORT INFORMATION
  Report Type: Spontaneous
  Country: US (occurrence: US)
  Receive Date: 20200128
  Receipt Date: 20200128
  Transmission Date: 20200409
  Serious: Yes (Life-Threatening, Hospitalization)
  Sender: FDA-Public Use
  Company Number: None

PATIENT
  Age: 55 Year
  Sex: Female
  Weight: 117 kg

DRUGS (3)
  1. METHOCARBAMOL 500MG QID [Concomitant]
  2. LEVOTHYROXINE 150MCG DAILY [Concomitant]
  3. EMPAGLIFLOZIN/METFORMIN [Suspect]
     Active Substance: EMPAGLIFLOZIN\METFORMIN HYDROCHLORIDE
     Indication: TYPE 2 DIABETES MELLITUS
     Route: 048
     Dates: start: 20200124, end: 20200127

REACTIONS (7)
  - Vomiting [None]
  - Blood glucose increased [None]
  - Feeling abnormal [None]
  - Nausea [None]
  - Acidosis [None]
  - Dehydration [None]
  - Diabetic ketoacidosis [None]

NARRATIVE: CASE EVENT DATE: 20200127
